FAERS Safety Report 12856999 (Version 1)
Quarter: 2016Q4

REPORT INFORMATION
  Report Type: Spontaneous
  Country: IT (occurrence: IT)
  Receive Date: 20161018
  Receipt Date: 20161018
  Transmission Date: 20170207
  Serious: Yes (Death, Other)
  Sender: FDA-Public Use
  Company Number: IT-BAYER-2016-195639

PATIENT
  Age: 84 Year
  Sex: Female

DRUGS (3)
  1. ACETYLSALICYLIC ACID (} 100 MG) [Suspect]
     Active Substance: ASPIRIN
     Dosage: UNK
  2. CLOPIDOGREL [Interacting]
     Active Substance: CLOPIDOGREL BISULFATE
     Dosage: 300 MG, UNK LOADING DOSE
  3. HEPARIN [Suspect]
     Active Substance: HEPARIN SODIUM
     Dosage: 5000 IU, UNK

REACTIONS (9)
  - Multiple organ dysfunction syndrome [Fatal]
  - Sepsis [Fatal]
  - Shock [Fatal]
  - Haemorrhage [None]
  - Haematoma [None]
  - Labelled drug-drug interaction medication error [None]
  - Potentiating drug interaction [None]
  - Haemoglobin decreased [None]
  - Drug administration error [None]
